FAERS Safety Report 9735891 (Version 2)
Quarter: 2013Q4

REPORT INFORMATION
  Report Type: Spontaneous
  Country: US (occurrence: US)
  Receive Date: 20131206
  Receipt Date: 20131206
  Transmission Date: 20140711
  Serious: No
  Sender: FDA-Public Use
  Company Number: US-GILEAD-2009-0023990

PATIENT
  Sex: Female
  Weight: 83.01 kg

DRUGS (10)
  1. LETAIRIS [Suspect]
     Indication: PULMONARY ARTERIAL HYPERTENSION
     Route: 048
     Dates: start: 20090318
  2. VENTAVIS [Concomitant]
  3. REVATIO [Concomitant]
  4. FUROSEMIDE [Concomitant]
  5. COZAAR [Concomitant]
  6. SINGULAIR [Concomitant]
  7. VERAMYST [Concomitant]
  8. NASONEX [Concomitant]
  9. TYLENOL [Concomitant]
  10. KLOR-CON [Concomitant]

REACTIONS (4)
  - Arthralgia [Unknown]
  - Nasal congestion [Unknown]
  - Oedema peripheral [Unknown]
  - Hot flush [Unknown]
